FAERS Safety Report 14276094 (Version 3)
Quarter: 2017Q4

REPORT INFORMATION
  Report Type: Spontaneous
  Country: US (occurrence: US)
  Receive Date: 20171212
  Receipt Date: 20171220
  Transmission Date: 20180321
  Serious: No
  Sender: FDA-Public Use
  Company Number: US-BIOGEN-2017BI00369985

PATIENT
  Sex: Female

DRUGS (1)
  1. TYSABRI [Suspect]
     Active Substance: NATALIZUMAB
     Indication: MULTIPLE SCLEROSIS
     Route: 065
     Dates: start: 20080313, end: 20081030

REACTIONS (4)
  - Hypersensitivity [Recovered/Resolved]
  - Pruritus [Unknown]
  - Incorrect drug administration rate [Unknown]
  - Malaise [Unknown]
